FAERS Safety Report 9170076 (Version 1)
Quarter: 2013Q1

REPORT INFORMATION
  Report Type: Spontaneous
  Country: US (occurrence: None)
  Receive Date: 20130314
  Receipt Date: 20130314
  Transmission Date: 20140127
  Serious: Yes (Life-Threatening, Hospitalization)
  Sender: FDA-Public Use
  Company Number: None

PATIENT
  Age: 73 Year
  Sex: Male
  Weight: 82 kg

DRUGS (1)
  1. RIVAROXABAN 15 MG JANSSEN [Suspect]
     Indication: DEEP VEIN THROMBOSIS
     Dosage: 15 MG BID PO
     Route: 048
     Dates: start: 20121204, end: 20121208

REACTIONS (2)
  - Gastrointestinal haemorrhage [None]
  - Haemoglobin decreased [None]
